FAERS Safety Report 6118970-2 (Version None)
Quarter: 2009Q1

REPORT INFORMATION
  Report Type: 
  Country: None (occurrence: None)
  Receive Date: 20090316
  Receipt Date: 20090306
  Transmission Date: 20090719
  Serious: Yes (Hospitalization)
  Sender: FDA-Public Use
  Company Number: FR-ASTRAZENECA-2008CG01712

PATIENT
  Age: 13829 Day
  Sex: Female
  Weight: 48 kg

DRUGS (2)
  1. ZOMIGORO [Suspect]
     Indication: MIGRAINE
     Route: 048
  2. ZOMIGORO [Suspect]
     Route: 048
     Dates: start: 20080927, end: 20081004

REACTIONS (1)
  - HYPERTENSIVE CRISIS [None]
